FAERS Safety Report 12722344 (Version 2)
Quarter: 2016Q3

REPORT INFORMATION
  Report Type: Report from Study
  Country: CA (occurrence: CA)
  Receive Date: 20160907
  Receipt Date: 20160914
  Transmission Date: 20161109
  Serious: Yes (Other)
  Sender: FDA-Public Use
  Company Number: CA-ABBVIE-16K-028-1717484-00

PATIENT
  Age: 68 Year
  Sex: Female

DRUGS (1)
  1. HUMIRA [Suspect]
     Active Substance: ADALIMUMAB
     Indication: PSORIASIS
     Route: 058
     Dates: start: 20090401

REACTIONS (3)
  - Device material opacification [Recovering/Resolving]
  - Cataract [Recovered/Resolved]
  - Device material opacification [Not Recovered/Not Resolved]

NARRATIVE: CASE EVENT DATE: 201602
